FAERS Safety Report 20740359 (Version 1)
Quarter: 2022Q2

REPORT INFORMATION
  Report Type: Spontaneous
  Country: US (occurrence: US)
  Receive Date: 20220422
  Receipt Date: 20220422
  Transmission Date: 20220721
  Serious: No
  Sender: FDA-Public Use
  Company Number: US-PFIZER INC-202200133924

PATIENT
  Age: 46 Year
  Sex: Male

DRUGS (3)
  1. IBRANCE [Suspect]
     Active Substance: PALBOCICLIB
     Indication: Soft tissue sarcoma
     Dosage: 125 MG, UNK
     Dates: start: 20220124
  2. IBRANCE [Suspect]
     Active Substance: PALBOCICLIB
     Indication: Malignant connective tissue neoplasm
     Dosage: 125 MG
     Dates: start: 20220126
  3. IBRANCE [Suspect]
     Active Substance: PALBOCICLIB
     Indication: Dedifferentiated liposarcoma
     Dosage: 125 MG
     Dates: start: 20220131

REACTIONS (2)
  - Off label use [Unknown]
  - Dry mouth [Unknown]
